FAERS Safety Report 7440597-0 (Version None)
Quarter: 2011Q2

REPORT INFORMATION
  Report Type: 
  Country: None (occurrence: None)
  Receive Date: 20110427
  Receipt Date: 20110420
  Transmission Date: 20111010
  Serious: Yes (Death)
  Sender: FDA-Public Use
  Company Number: B0712275A

PATIENT
  Sex: Male
  Weight: 50 kg

DRUGS (6)
  1. CHINESE MEDICINE [Concomitant]
     Indication: DECREASED APPETITE
     Dosage: 7.5G PER DAY
     Route: 048
     Dates: start: 20100129, end: 20100202
  2. ENSURE [Concomitant]
     Indication: DECREASED APPETITE
     Route: 048
     Dates: start: 20100129, end: 20100202
  3. TRANSAMIN [Concomitant]
     Dosage: 750MG PER DAY
     Route: 048
     Dates: start: 20100129, end: 20100202
  4. ADONA (AC-17) [Concomitant]
     Dosage: 90MG PER DAY
     Route: 048
     Dates: start: 20100129, end: 20100202
  5. MUCODYNE [Concomitant]
     Indication: EMPHYSEMA
     Dosage: 1500MG PER DAY
     Route: 048
     Dates: start: 20100127, end: 20100202
  6. FLUTICASONE PROPIONATE/SALMETEROL [Suspect]
     Indication: EMPHYSEMA
     Dosage: 500MCG PER DAY
     Route: 055
     Dates: start: 20100127, end: 20100202

REACTIONS (1)
  - RESPIRATORY FAILURE [None]
